FAERS Safety Report 21643389 (Version 1)
Quarter: 2022Q4

REPORT INFORMATION
  Report Type: Spontaneous
  Country: US (occurrence: None)
  Receive Date: 20221125
  Receipt Date: 20221125
  Transmission Date: 20230112
  Serious: Yes (Death, Hospitalization)
  Sender: FDA-Public Use
  Company Number: 2022A386995

PATIENT
  Age: 24472 Day
  Sex: Female

DRUGS (1)
  1. FASENRA [Suspect]
     Active Substance: BENRALIZUMAB
     Indication: Asthma
     Route: 058

REACTIONS (1)
  - Aneurysm [Fatal]

NARRATIVE: CASE EVENT DATE: 20211021
